FAERS Safety Report 6434901-X (Version None)
Quarter: 2009Q4

REPORT INFORMATION
  Report Type: 
  Country: None (occurrence: None)
  Receive Date: 20091109
  Receipt Date: 20091109
  Transmission Date: 20100525
  Serious: Yes (Other)
  Sender: FDA-Public Use
  Company Number: None

PATIENT
  Age: 61 Year
  Sex: Female
  Weight: 79.5 kg

DRUGS (1)
  1. SERTRALINE HCL [Suspect]
     Indication: ANXIETY
     Dosage: 75 MG DAILY BY MOUTH
     Route: 048
     Dates: start: 20091026, end: 20091101

REACTIONS (5)
  - DISTURBANCE IN ATTENTION [None]
  - HEADACHE [None]
  - NERVOUSNESS [None]
  - PRODUCT SUBSTITUTION ISSUE [None]
  - SLEEP DISORDER [None]
